FAERS Safety Report 20776917 (Version 4)
Quarter: 2022Q4

REPORT INFORMATION
  Report Type: Report from Study
  Country: NL (occurrence: NL)
  Receive Date: 20220502
  Receipt Date: 20221206
  Transmission Date: 20230113
  Serious: Yes (Hospitalization)
  Sender: FDA-Public Use
  Company Number: NL-BRISTOL-MYERS SQUIBB COMPANY-2022-028601

PATIENT
  Age: 64 Year
  Sex: Female

DRUGS (3)
  1. NIVOLUMAB [Suspect]
     Active Substance: NIVOLUMAB
     Indication: Non-small cell lung cancer metastatic
     Route: 042
     Dates: start: 20211210, end: 20220408
  2. SITRAVATINIB [Suspect]
     Active Substance: SITRAVATINIB
     Indication: Non-small cell lung cancer metastatic
     Route: 048
     Dates: start: 20211210
  3. SITRAVATINIB [Suspect]
     Active Substance: SITRAVATINIB
     Route: 048
     Dates: start: 20220408

REACTIONS (1)
  - Radiculopathy [Not Recovered/Not Resolved]

NARRATIVE: CASE EVENT DATE: 20220419
